FAERS Safety Report 6744572-0 (Version None)
Quarter: 2010Q2

REPORT INFORMATION
  Report Type: 
  Country: None (occurrence: None)
  Receive Date: 20100527
  Receipt Date: 20100518
  Transmission Date: 20101027
  Serious: Yes (Other)
  Sender: FDA-Public Use
  Company Number: PHHY2010JP32356

PATIENT
  Sex: Male

DRUGS (3)
  1. VOLTAREN [Suspect]
     Indication: PYREXIA
     Dosage: 25 MG, QD
     Route: 048
     Dates: start: 20100421, end: 20100426
  2. NORVASC [Suspect]
     Indication: HYPERTENSION
     Dosage: 5 MG
     Route: 048
     Dates: start: 20100421, end: 20100426
  3. PAXIL [Suspect]
     Indication: DEPRESSION
     Dosage: 20 MG
     Route: 048
     Dates: start: 20100421, end: 20100426

REACTIONS (5)
  - ACQUIRED HAEMOPHILIA [None]
  - CONDITION AGGRAVATED [None]
  - FACTOR VIII DEFICIENCY [None]
  - PLATELET COUNT DECREASED [None]
  - RASH [None]
